FAERS Safety Report 18705702 (Version 1)
Quarter: 2021Q1

REPORT INFORMATION
  Report Type: Spontaneous
  Country: CA (occurrence: CA)
  Receive Date: 20210106
  Receipt Date: 20210106
  Transmission Date: 20210419
  Serious: Yes (Death)
  Sender: FDA-Public Use
  Company Number: CA-TEVA-2020-CA-1864699

PATIENT
  Age: 54 Year
  Sex: Female

DRUGS (5)
  1. DILANTIN [Concomitant]
     Active Substance: PHENYTOIN
  2. ETOPOSIDE. [Suspect]
     Active Substance: ETOPOSIDE
     Indication: PRODUCT USED FOR UNKNOWN INDICATION
     Route: 065
  3. SYNTHROID [Concomitant]
     Active Substance: LEVOTHYROXINE SODIUM
  4. BEVACIZUMAB. [Suspect]
     Active Substance: BEVACIZUMAB
     Indication: BRAIN NEOPLASM MALIGNANT
     Route: 042
  5. PROCARBAZINE HYDROCHLORIDE [Concomitant]
     Active Substance: PROCARBAZINE HYDROCHLORIDE

REACTIONS (12)
  - Injection site haemorrhage [Fatal]
  - Swelling [Fatal]
  - Blood pressure increased [Fatal]
  - Heart rate decreased [Fatal]
  - Somnolence [Fatal]
  - Blood pressure fluctuation [Fatal]
  - Oxygen saturation decreased [Fatal]
  - Terminal state [Fatal]
  - Body temperature decreased [Fatal]
  - Body temperature increased [Fatal]
  - Mobility decreased [Fatal]
  - Neoplasm progression [Fatal]
